FAERS Safety Report 8466223 (Version 4)
Quarter: 2012Q4

REPORT INFORMATION
  Report Type: 
  Country: US (occurrence: US)
  Receive Date: 20120319
  Receipt Date: 20120911
  Transmission Date: 20130627
  Serious: Yes (Hospitalization, Other)
  Sender: FDA-Public Use
  Company Number: US-BAYER-2012-024515

PATIENT
  Age: 29 Year
  Sex: Female

DRUGS (8)
  1. YAZ [Suspect]
     Dosage: UNK
     Dates: start: 20071106, end: 201005
  2. OCELLA [Suspect]
     Indication: ACNE
     Dosage: UNK
     Dates: start: 200911, end: 201005
  3. OCELLA [Suspect]
     Indication: PREMENSTRUAL SYNDROME
  4. TAMIFLU [Concomitant]
     Dosage: 75 mg, UNK
     Dates: start: 20100427
  5. AZITHROMYCIN [Concomitant]
     Dosage: 250 mg, UNK
     Dates: start: 20100427
  6. PROMETHAZINE W/CODEINE [Concomitant]
     Dosage: UNK
     Dates: start: 20100427
  7. PROAIR HFA [Concomitant]
     Route: 045
  8. OXYGEN [Concomitant]
     Indication: DYSPNOEA

REACTIONS (3)
  - Pulmonary embolism [None]
  - Deep vein thrombosis [None]
  - Thrombosis [None]
